FAERS Safety Report 5003208-X (Version None)
Quarter: 2006Q2

REPORT INFORMATION
  Report Type: 
  Country: None (occurrence: None)
  Receive Date: 20060512
  Receipt Date: 20060503
  Transmission Date: 20061013
  Serious: Yes (Hospitalization)
  Sender: FDA-Public Use
  Company Number: 224656

PATIENT
  Age: 54 Year
  Sex: Male
  Weight: 100 kg

DRUGS (7)
  1. AVASTIN [Suspect]
     Indication: RENAL CELL CARCINOMA STAGE UNSPECIFIED
     Dosage: 980 MG, Q2W, INTRAVENOUS
     Route: 042
     Dates: start: 20060413
  2. ERLOTINIB (ERLOTINIB) TABLET, 100MG [Suspect]
     Indication: RENAL CELL CARCINOMA STAGE UNSPECIFIED
     Dosage: 75 MG, QD, ORAL
     Route: 048
     Dates: start: 20060427
  3. NORVASC [Concomitant]
  4. METOPROLOL TARTRATE [Concomitant]
  5. BENICAR HCT (HYDROCHLOROTHIAZIDE, OLMESARTAN MEDOXOMIL) [Concomitant]
  6. NEXIUM [Concomitant]
  7. MAGNESIUM OXIDE (MAGNESIUM OXIDE) [Concomitant]

REACTIONS (10)
  - ACIDOSIS [None]
  - BLOOD PRESSURE DIASTOLIC DECREASED [None]
  - BLOOD SODIUM DECREASED [None]
  - BLOOD URIC ACID INCREASED [None]
  - DIARRHOEA [None]
  - DYSPHONIA [None]
  - HEART RATE DECREASED [None]
  - PYREXIA [None]
  - RENAL FAILURE ACUTE [None]
  - VOMITING [None]
